FAERS Safety Report 8849317 (Version 3)
Quarter: 2013Q4

REPORT INFORMATION
  Report Type: Spontaneous
  Country: US (occurrence: None)
  Receive Date: 20120426
  Receipt Date: 20131226
  Transmission Date: 20140711
  Serious: Yes (Other)
  Sender: FDA-Public Use
  Company Number: PHEH2012US002274

PATIENT
  Age: 34 Year
  Sex: Female

DRUGS (1)
  1. GILENYA [Suspect]
     Indication: MULTIPLE SCLEROSIS
     Route: 048
     Dates: start: 20110201

REACTIONS (7)
  - Red blood cell count decreased [None]
  - Infection [None]
  - White blood cell count decreased [None]
  - Lymphocyte count decreased [None]
  - Nasopharyngitis [None]
  - Immune system disorder [None]
  - Malaise [None]
